FAERS Safety Report 10757365 (Version 1)
Quarter: 2015Q1

REPORT INFORMATION
  Report Type: Report from Study
  Country: DE (occurrence: DE)
  Receive Date: 20150203
  Receipt Date: 20150203
  Transmission Date: 20150721
  Serious: Yes (Death, Life-Threatening, Hospitalization, Disabling)
  Sender: FDA-Public Use
  Company Number: DE-009507513-2011SP044853

PATIENT
  Age: 52 Year
  Sex: Male
  Weight: 97 kg

DRUGS (45)
  1. CARBAMAZEPINE. [Concomitant]
     Active Substance: CARBAMAZEPINE
     Dosage: 150 MG, QD
     Dates: start: 20100825, end: 20100827
  2. CARBAMAZEPINE. [Concomitant]
     Active Substance: CARBAMAZEPINE
     Dosage: 150 MG, QD
     Dates: start: 20100601, end: 20100809
  3. DEXAMETHASONE. [Concomitant]
     Active Substance: DEXAMETHASONE
     Dosage: 12 MG, QD
     Route: 048
     Dates: start: 20110515, end: 20110517
  4. DEXAMETHASONE. [Concomitant]
     Active Substance: DEXAMETHASONE
     Dosage: 12 MG, QD
     Route: 048
     Dates: start: 20110515, end: 20110519
  5. DEXAMETHASONE. [Concomitant]
     Active Substance: DEXAMETHASONE
     Dosage: 4 MG, QD
     Route: 048
     Dates: start: 20110614
  6. DIAZEPAM. [Concomitant]
     Active Substance: DIAZEPAM
     Dosage: 10 MG, QD
     Dates: start: 20101101, end: 20101101
  7. LEVETIRACETAM. [Concomitant]
     Active Substance: LEVETIRACETAM
     Dosage: UNK
     Dates: start: 20100810
  8. IRINOTECAN HYDROCHLORIDE. [Suspect]
     Active Substance: IRINOTECAN HYDROCHLORIDE
     Indication: GLIOBLASTOMA MULTIFORME
     Dosage: 250 MG, BIW
     Route: 042
     Dates: start: 20101115, end: 20101227
  9. DEXAMETHASONE. [Concomitant]
     Active Substance: DEXAMETHASONE
     Dosage: 8 MG, QD
     Route: 048
     Dates: start: 20100529, end: 20100622
  10. DEXAMETHASONE. [Concomitant]
     Active Substance: DEXAMETHASONE
     Dosage: 12 MG, QD
     Route: 048
     Dates: start: 20101005, end: 20101010
  11. DEXAMETHASONE. [Concomitant]
     Active Substance: DEXAMETHASONE
     Dosage: 24 MG, QD
     Route: 048
     Dates: start: 20110602, end: 20110613
  12. DEXAMETHASONE. [Concomitant]
     Active Substance: DEXAMETHASONE
     Dosage: 16-36 MG QD
     Route: 048
     Dates: start: 20101008
  13. PANTOPRAZOLE [Concomitant]
     Active Substance: PANTOPRAZOLE SODIUM
     Dosage: 40 MG DAILY
  14. DIAZEPAM. [Concomitant]
     Active Substance: DIAZEPAM
     Dosage: 4 MG, QD
     Dates: start: 20101105, end: 20101107
  15. DULCOLAX [Concomitant]
     Active Substance: BISACODYL OR DOCUSATE SODIUM
     Dosage: 10 MG, QD
  16. CARBAMAZEPINE. [Concomitant]
     Active Substance: CARBAMAZEPINE
     Dosage: 300 MG, QD
     Dates: start: 20100823, end: 20100824
  17. DEXAMETHASONE. [Concomitant]
     Active Substance: DEXAMETHASONE
     Dosage: 24 MG, QD
     Route: 048
     Dates: start: 20110520, end: 20110601
  18. CARBAMAZEPINE. [Concomitant]
     Active Substance: CARBAMAZEPINE
     Dosage: UNK
     Dates: start: 20100518, end: 2010
  19. CARBAMAZEPINE. [Concomitant]
     Active Substance: CARBAMAZEPINE
     Dosage: 450 MG, QD
     Dates: start: 20100821, end: 20100822
  20. DEXAMETHASONE. [Concomitant]
     Active Substance: DEXAMETHASONE
     Dosage: 2 MG, QD
     Route: 048
     Dates: start: 20100703, end: 20100706
  21. DEXAMETHASONE. [Concomitant]
     Active Substance: DEXAMETHASONE
     Dosage: 4 MG, QD
     Route: 048
     Dates: start: 20110518, end: 20110521
  22. HALDOL [Concomitant]
     Active Substance: HALOPERIDOL
     Dosage: 6 MG, QD
     Dates: start: 20101103, end: 20101103
  23. TAVOR [Concomitant]
     Active Substance: LORAZEPAM
     Dosage: 2.5 MG, QD
  24. TEMODAL [Suspect]
     Active Substance: TEMOZOLOMIDE
     Dosage: 420 MG, FREQUENCY: D1-D5Q28D
     Route: 048
     Dates: start: 2010, end: 20101004
  25. BEVACIZUMAB [Suspect]
     Active Substance: BEVACIZUMAB
     Dosage: 950 MG, 2 IN 1 WEEK
     Route: 042
     Dates: start: 20101115
  26. DEXAMETHASONE. [Concomitant]
     Active Substance: DEXAMETHASONE
     Dosage: 1 MG, QD
     Route: 048
     Dates: start: 20100707, end: 20100711
  27. DIAZEPAM. [Concomitant]
     Active Substance: DIAZEPAM
     Dosage: 1 MG, QD
     Dates: start: 20100101, end: 20100101
  28. DEXAMETHASONE. [Concomitant]
     Active Substance: DEXAMETHASONE
     Dosage: 4 MG, QD
     Route: 048
     Dates: start: 20100623, end: 20100629
  29. DEXAMETHASONE. [Concomitant]
     Active Substance: DEXAMETHASONE
     Dosage: 8 MG, QD
     Route: 048
     Dates: start: 20101011, end: 20101019
  30. DEXAMETHASONE. [Concomitant]
     Active Substance: DEXAMETHASONE
     Dosage: 4 MG DAILY
     Route: 048
     Dates: start: 20101020, end: 201010
  31. DIAZEPAM. [Concomitant]
     Active Substance: DIAZEPAM
     Dosage: 1 MG, QD
     Dates: start: 20100113
  32. DIAZEPAM. [Concomitant]
     Active Substance: DIAZEPAM
     Dosage: 5 MG, QD
     Dates: start: 20101103, end: 20101104
  33. HALDOL [Concomitant]
     Active Substance: HALOPERIDOL
     Dosage: 8 MG, QD
     Dates: start: 20101102, end: 20101102
  34. HALDOL [Concomitant]
     Active Substance: HALOPERIDOL
     Dosage: 5 MG, QD
     Dates: start: 20101104, end: 20101104
  35. ACETAMINOPHEN. [Concomitant]
     Active Substance: ACETAMINOPHEN
     Dosage: 500 MG, QD
  36. CARBAMAZEPINE. [Concomitant]
     Active Substance: CARBAMAZEPINE
     Dosage: 600 MG, QD
     Dates: start: 20100810, end: 20100820
  37. DEXAMETHASONE. [Concomitant]
     Active Substance: DEXAMETHASONE
     Dosage: 12 MG, QD
     Route: 048
     Dates: start: 20100522, end: 20100528
  38. DIAZEPAM. [Concomitant]
     Active Substance: DIAZEPAM
     Dosage: 7.5 MG, QD
     Dates: start: 20101102, end: 20101102
  39. DIAZEPAM. [Concomitant]
     Active Substance: DIAZEPAM
     Dosage: 2 MG, QD
     Dates: start: 20101108, end: 20110112
  40. AKINETON [Concomitant]
     Active Substance: BIPERIDEN HYDROCHLORIDE
     Dosage: 4 MG, QD
     Dates: end: 20101201
  41. TEMODAL [Suspect]
     Active Substance: TEMOZOLOMIDE
     Indication: GLIOBLASTOMA MULTIFORME
     Dosage: 165 MG, FREQUENCY: D1-D5Q28D
     Route: 048
     Dates: start: 20100623, end: 2010
  42. BEVACIZUMAB [Suspect]
     Active Substance: BEVACIZUMAB
     Indication: GLIOBLASTOMA MULTIFORME
     Dosage: 950 MG, 2 IN 1 WEEK
     Route: 042
     Dates: start: 20100623, end: 20110429
  43. DEXAMETHASONE. [Concomitant]
     Active Substance: DEXAMETHASONE
     Dosage: 3 MG, QD
     Route: 048
     Dates: start: 20100630, end: 20100702
  44. DIAZEPAM. [Concomitant]
     Active Substance: DIAZEPAM
     Dosage: 1 MG, QD
     Dates: start: 20110113
  45. HALDOL [Concomitant]
     Active Substance: HALOPERIDOL
     Dosage: 10 MG, QD
     Dates: end: 20101101

REACTIONS (6)
  - General physical health deterioration [Recovered/Resolved with Sequelae]
  - Coma [Fatal]
  - General physical health deterioration [Unknown]
  - Seizure [Recovered/Resolved]
  - Seizure [Recovered/Resolved]
  - Hemiparesis [Recovered/Resolved with Sequelae]

NARRATIVE: CASE EVENT DATE: 20100810
